FAERS Safety Report 9803226 (Version 2)
Quarter: 2014Q1

REPORT INFORMATION
  Report Type: Spontaneous
  Country: BR (occurrence: BR)
  Receive Date: 20140108
  Receipt Date: 20140108
  Transmission Date: 20141002
  Serious: Yes (Hospitalization, Other)
  Sender: FDA-Public Use
  Company Number: PHHY2013BR143106

PATIENT
  Sex: Male

DRUGS (14)
  1. HYDERGINE SRO [Suspect]
     Indication: CEREBRAL ISCHAEMIA
     Dosage: 6 MG, DAILY
     Route: 048
     Dates: end: 201312
  2. HYDERGINE SRO [Suspect]
     Dosage: 6 MG, DAILY
     Route: 048
  3. LOSARTAN [Concomitant]
     Indication: HYPERTENSION
     Dosage: 100 MG, DAILY
     Route: 048
  4. ATORVASTATIN [Concomitant]
     Indication: BLOOD CHOLESTEROL INCREASED
     Dosage: 20 MG, DAILY
     Route: 048
  5. ALDACTONE [Concomitant]
     Indication: CARDIAC DISORDER
     Dosage: 25 MG, DAILY
     Route: 048
  6. ANCORON [Concomitant]
     Indication: CARDIAC DISORDER
     Dosage: 25 MG, DAILY
     Route: 048
  7. METFORMIN [Concomitant]
     Indication: DIABETES MELLITUS
     Dosage: 3 DF (850 MG), DAILY
     Route: 048
  8. OMEPRAZOLE [Concomitant]
     Indication: ABDOMINAL DISCOMFORT
     Dosage: 20 MG, DAILY
     Route: 048
  9. FORASEQ [Concomitant]
     Indication: BRONCHITIS CHRONIC
     Dosage: 2 DF (12/400 MCG), DAILY
     Route: 055
  10. LYRICA [Concomitant]
     Indication: NEUROPATHY PERIPHERAL
     Dosage: 2 DF (150 MG), DAILY
     Route: 048
  11. CLOPIDOGREL BISULFATE [Concomitant]
     Indication: CEREBRAL ISCHAEMIA
     Dosage: 75 MG, DAILY
     Route: 048
  12. CYMBALTA [Concomitant]
     Indication: DEPRESSION
     Dosage: 60 MG, DAILY
     Route: 048
  13. ASPIRINA PREVENT [Concomitant]
     Indication: ANTICOAGULANT THERAPY
     Dosage: 100 MG, DAILY
     Route: 048
  14. THIOCTACID [Concomitant]
     Indication: NEUROPATHY PERIPHERAL
     Dosage: 600 MG, DAILY
     Route: 048

REACTIONS (1)
  - Infarction [Recovered/Resolved]
